FAERS Safety Report 7551479-8 (Version None)
Quarter: 2011Q2

REPORT INFORMATION
  Report Type: 
  Country: None (occurrence: None)
  Receive Date: 20110616
  Receipt Date: 20110606
  Transmission Date: 20111010
  Serious: Yes (Hospitalization)
  Sender: FDA-Public Use
  Company Number: PHHY2010JP20871

PATIENT
  Age: 19 Year
  Sex: Male
  Weight: 52 kg

DRUGS (4)
  1. TEGRETOL [Suspect]
     Indication: TRIGEMINAL NEURALGIA
     Dosage: 66.6 MG, TID
     Route: 048
     Dates: start: 20100101, end: 20100127
  2. GLYCEOL [Concomitant]
     Route: 048
  3. ACIROVEC [Concomitant]
     Route: 048
  4. LANDSEN [Concomitant]
     Route: 048

REACTIONS (7)
  - RASH [None]
  - OEDEMA [None]
  - DRUG RASH WITH EOSINOPHILIA AND SYSTEMIC SYMPTOMS [None]
  - LYMPHADENOPATHY [None]
  - HEPATIC FUNCTION ABNORMAL [None]
  - TYPE 1 DIABETES MELLITUS [None]
  - PYREXIA [None]
